FAERS Safety Report 24400208 (Version 1)
Quarter: 2024Q4

REPORT INFORMATION
  Report Type: Spontaneous
  Country: ES (occurrence: ES)
  Receive Date: 20241005
  Receipt Date: 20241005
  Transmission Date: 20250114
  Serious: Yes (Other)
  Sender: TEVA
  Company Number: None

PATIENT
  Age: 74 Year
  Sex: Female
  Weight: 75.2 kg

DRUGS (1)
  1. AMOXICILLIN\CLAVULANIC ACID [Suspect]
     Active Substance: AMOXICILLIN\CLAVULANIC ACID
     Indication: Exeresis
     Dosage: AMOXICILLIN + CLAVULANIC ACID
     Route: 048
     Dates: start: 20231114, end: 20231115

REACTIONS (2)
  - Face oedema [Recovering/Resolving]
  - Oedema genital [Recovering/Resolving]

NARRATIVE: CASE EVENT DATE: 20231114
